FAERS Safety Report 16862787 (Version 3)
Quarter: 2021Q1

REPORT INFORMATION
  Report Type: Spontaneous
  Country: US (occurrence: US)
  Receive Date: 20190927
  Receipt Date: 20210204
  Transmission Date: 20210419
  Serious: Yes (Other)
  Sender: FDA-Public Use
  Company Number: US-GILEAD-2019-0429688

PATIENT
  Age: 47 Year
  Sex: Male
  Weight: 65.31 kg

DRUGS (53)
  1. TIVICAY [Concomitant]
     Active Substance: DOLUTEGRAVIR SODIUM
  2. ZOLPIDEM [Concomitant]
     Active Substance: ZOLPIDEM TARTRATE
  3. PREDNISONE. [Concomitant]
     Active Substance: PREDNISONE
  4. ACIPHEX [Concomitant]
     Active Substance: RABEPRAZOLE SODIUM
  5. MONTELUKAST [Concomitant]
     Active Substance: MONTELUKAST SODIUM
  6. POTASSIUM [Concomitant]
     Active Substance: POTASSIUM
  7. CLINDAMYCIN. [Concomitant]
     Active Substance: CLINDAMYCIN
  8. TRAMADOL. [Concomitant]
     Active Substance: TRAMADOL
  9. FENTANYL TRANSDERMAL SYSTEM [Concomitant]
     Active Substance: FENTANYL
  10. DIAZEPAM. [Concomitant]
     Active Substance: DIAZEPAM
  11. NADOLOL. [Concomitant]
     Active Substance: NADOLOL
  12. ATRIPLA [Suspect]
     Active Substance: EFAVIRENZ\EMTRICITABINE\TENOFOVIR DISOPROXIL FUMARATE
     Indication: HIV INFECTION
     Dosage: UNK
     Route: 048
     Dates: start: 2008, end: 2016
  13. ZOFRAN [Concomitant]
     Active Substance: ONDANSETRON HYDROCHLORIDE
  14. CYCLOBENZAPRINE. [Concomitant]
     Active Substance: CYCLOBENZAPRINE
  15. FLUCONAZOLE. [Concomitant]
     Active Substance: FLUCONAZOLE
  16. EPINEPHRINE. [Concomitant]
     Active Substance: EPINEPHRINE
  17. BREO ELLIPTA [Concomitant]
     Active Substance: FLUTICASONE FUROATE\VILANTEROL TRIFENATATE
  18. LIVALO [Concomitant]
     Active Substance: PITAVASTATIN CALCIUM
  19. CHLORPROMAZINE. [Concomitant]
     Active Substance: CHLORPROMAZINE
  20. PANTOPRAZOLE [Concomitant]
     Active Substance: PANTOPRAZOLE
  21. VENTOLIN [Concomitant]
     Active Substance: ALBUTEROL SULFATE
  22. PROCHLORPERAZINE. [Concomitant]
     Active Substance: PROCHLORPERAZINE
  23. MIDODRINE [Concomitant]
     Active Substance: MIDODRINE
  24. DANAZOL. [Concomitant]
     Active Substance: DANAZOL
  25. ROPINIROLE. [Concomitant]
     Active Substance: ROPINIROLE
  26. SYMBICORT [Concomitant]
     Active Substance: BUDESONIDE\FORMOTEROL FUMARATE DIHYDRATE
  27. EPIVIR [Concomitant]
     Active Substance: LAMIVUDINE
  28. LORAZEPAM. [Concomitant]
     Active Substance: LORAZEPAM
  29. HYDROCHLOROTHIAZIDE. [Concomitant]
     Active Substance: HYDROCHLOROTHIAZIDE
  30. PROMETHAZINE [Concomitant]
     Active Substance: PROMETHAZINE HYDROCHLORIDE
  31. METOPROLOL. [Concomitant]
     Active Substance: METOPROLOL
  32. VITAMIN D2 [Concomitant]
     Active Substance: ERGOCALCIFEROL
  33. ZYRTEC [Concomitant]
     Active Substance: CETIRIZINE HYDROCHLORIDE
  34. HYDROMORPHONE [Concomitant]
     Active Substance: HYDROMORPHONE
  35. VENLAFAXINE [Concomitant]
     Active Substance: VENLAFAXINE HYDROCHLORIDE
  36. OXYCODONE [Concomitant]
     Active Substance: OXYCODONE
  37. EFFEXOR [Concomitant]
     Active Substance: VENLAFAXINE HYDROCHLORIDE
  38. CIPROFLOXACIN. [Concomitant]
     Active Substance: CIPROFLOXACIN
  39. METHYLPREDNISOLONE. [Concomitant]
     Active Substance: METHYLPREDNISOLONE
  40. KLOR?CON [Concomitant]
     Active Substance: POTASSIUM CHLORIDE
  41. AMITIZA [Concomitant]
     Active Substance: LUBIPROSTONE
  42. HYDROXYUREA. [Concomitant]
     Active Substance: HYDROXYUREA
  43. OVARELL [Concomitant]
  44. ABACAVIR. [Concomitant]
     Active Substance: ABACAVIR
  45. BIKTARVY [Concomitant]
     Active Substance: BICTEGRAVIR SODIUM\EMTRICITABINE\TENOFOVIR ALAFENAMIDE FUMARATE
  46. HYDROXYZINE [Concomitant]
     Active Substance: HYDROXYZINE HYDROCHLORIDE
  47. SODIUM BICARBONATE. [Concomitant]
     Active Substance: SODIUM BICARBONATE
  48. OMNARIS [Concomitant]
     Active Substance: CICLESONIDE
  49. KETOCONAZOLE. [Concomitant]
     Active Substance: KETOCONAZOLE
  50. DEXAMETHASONE. [Concomitant]
     Active Substance: DEXAMETHASONE
  51. VALACYCLOVIR [VALACICLOVIR HYDROCHLORIDE] [Concomitant]
     Active Substance: VALACYCLOVIR HYDROCHLORIDE
  52. MOMETASONE [Concomitant]
     Active Substance: MOMETASONE
  53. GRANISETRON [Concomitant]
     Active Substance: GRANISETRON

REACTIONS (12)
  - Acute kidney injury [Recovered/Resolved]
  - Anhedonia [Not Recovered/Not Resolved]
  - Quality of life decreased [Not Recovered/Not Resolved]
  - End stage renal disease [Unknown]
  - Chronic kidney disease [Not Recovered/Not Resolved]
  - Decreased activity [Not Recovered/Not Resolved]
  - Anxiety [Not Recovered/Not Resolved]
  - Pain [Not Recovered/Not Resolved]
  - Loss of personal independence in daily activities [Not Recovered/Not Resolved]
  - Impaired work ability [Not Recovered/Not Resolved]
  - Economic problem [Not Recovered/Not Resolved]
  - Emotional distress [Not Recovered/Not Resolved]

NARRATIVE: CASE EVENT DATE: 201506
